FAERS Safety Report 22520480 (Version 2)
Quarter: 2023Q2

REPORT INFORMATION
  Report Type: Spontaneous
  Country: IN (occurrence: IN)
  Receive Date: 20230605
  Receipt Date: 20230613
  Transmission Date: 20230722
  Serious: Yes (Death, Hospitalization, Other)
  Sender: FDA-Public Use
  Company Number: IN-PFIZER INC-PV202300077307

PATIENT
  Age: 67 Year
  Sex: Female

DRUGS (2)
  1. IBRANCE [Suspect]
     Active Substance: PALBOCICLIB
     Dosage: UNK
  2. IBRANCE [Suspect]
     Active Substance: PALBOCICLIB
     Dosage: TO BE TAKEN 21 DAYS WITH 9 OFF DAYS

REACTIONS (7)
  - Neoplasm progression [Fatal]
  - Cardiac arrest [Fatal]
  - Oxygen saturation decreased [Fatal]
  - Disorientation [Unknown]
  - Cancer pain [Unknown]
  - Urinary incontinence [Unknown]
  - Anal incontinence [Unknown]
